FAERS Safety Report 5416843-1 (Version None)
Quarter: 2007Q3

REPORT INFORMATION
  Report Type: 
  Country: None (occurrence: None)
  Receive Date: 20070815
  Receipt Date: 20070815
  Transmission Date: 20080115
  Serious: No
  Sender: FDA-Public Use
  Company Number: None

PATIENT
  Sex: Female
  Weight: 83 kg

DRUGS (2)
  1. CYCLOPHOSPHAMIDE [Suspect]
     Dosage: 1140 MG
  2. DOXORUBICIN HCL [Suspect]
     Dosage: 114 MG

REACTIONS (1)
  - NEUTROPHIL COUNT ABNORMAL [None]
